FAERS Safety Report 23618009 (Version 1)
Quarter: 2024Q1

REPORT INFORMATION
  Report Type: Spontaneous
  Country: RU (occurrence: RU)
  Receive Date: 20240311
  Receipt Date: 20240311
  Transmission Date: 20240410
  Serious: Yes (Hospitalization, Other)
  Sender: FDA-Public Use
  Company Number: RU-SA-2024SA077632

PATIENT
  Age: 2 Year
  Sex: Male

DRUGS (2)
  1. ELOCTA [Suspect]
     Active Substance: EFMOROCTOCOG ALFA
     Indication: Factor VIII deficiency
     Dosage: 500 IU, BIW
     Route: 042
     Dates: start: 202304
  2. ELOCTA [Suspect]
     Active Substance: EFMOROCTOCOG ALFA
     Indication: Factor VIII deficiency
     Dosage: 500 IU, BIW
     Route: 042
     Dates: start: 202304

REACTIONS (3)
  - Haemarthrosis [Unknown]
  - Traumatic haematoma [Unknown]
  - Anti factor VIII antibody positive [Unknown]

NARRATIVE: CASE EVENT DATE: 20240216
